FAERS Safety Report 6007567-0 (Version None)
Quarter: 2008Q4

REPORT INFORMATION
  Report Type: 
  Country: None (occurrence: None)
  Receive Date: 20081217
  Receipt Date: 20080512
  Transmission Date: 20090506
  Serious: No
  Sender: FDA-Public Use
  Company Number: US-ASTRAZENECA-2008UW09721

PATIENT
  Age: 73 Year
  Sex: Female
  Weight: 66.7 kg

DRUGS (4)
  1. CRESTOR [Suspect]
     Indication: BLOOD CHOLESTEROL INCREASED
     Route: 048
  2. ACTONEL [Concomitant]
  3. MULTI-VITAMINS [Concomitant]
  4. GLUCOSAMINE [Concomitant]

REACTIONS (1)
  - ALOPECIA [None]
